FAERS Safety Report 16648155 (Version 1)
Quarter: 2019Q3

REPORT INFORMATION
  Report Type: Spontaneous
  Country: FR (occurrence: FR)
  Receive Date: 20190730
  Receipt Date: 20190730
  Transmission Date: 20191004
  Serious: Yes (Hospitalization, Other)
  Sender: FDA-Public Use
  Company Number: FR-PFIZER INC-2019316757

PATIENT
  Age: 43 Year
  Sex: Female

DRUGS (4)
  1. SERTRALINE HCL [Suspect]
     Active Substance: SERTRALINE HYDROCHLORIDE
     Dosage: 200 MG, UNK
     Route: 048
     Dates: start: 20190627, end: 20190627
  2. DIAZEPAM. [Suspect]
     Active Substance: DIAZEPAM
     Dosage: 80 MG, UNK
     Route: 048
     Dates: start: 20190627, end: 20190627
  3. ZOPICLONE [Suspect]
     Active Substance: ZOPICLONE
     Dosage: 45 MG, UNK
     Route: 048
     Dates: start: 20190627, end: 20190627
  4. TERCIAN [Suspect]
     Active Substance: CYAMEMAZINE
     Dosage: 100 MG, UNK
     Route: 048
     Dates: start: 20190627, end: 20190627

REACTIONS (4)
  - Toxicity to various agents [Unknown]
  - Hallucination, visual [Recovered/Resolved]
  - Hypotension [Recovered/Resolved]
  - Coma [Recovered/Resolved]

NARRATIVE: CASE EVENT DATE: 20190627
